FAERS Safety Report 5035363-X (Version None)
Quarter: 2006Q2

REPORT INFORMATION
  Report Type: 
  Country: None (occurrence: None)
  Receive Date: 20060627
  Receipt Date: 20060606
  Transmission Date: 20061013
  Serious: Yes (Other)
  Sender: FDA-Public Use
  Company Number: US-ROCHE-450959

PATIENT
  Age: 48 Year
  Sex: Female

DRUGS (2)
  1. PEGASYS [Suspect]
     Route: 058
     Dates: start: 20060228
  2. RIBAVIRIN [Suspect]
     Route: 048
     Dates: start: 20060228

REACTIONS (10)
  - ALOPECIA [None]
  - BACK PAIN [None]
  - DRY SKIN [None]
  - FULL BLOOD COUNT DECREASED [None]
  - LYMPHADENOPATHY [None]
  - MUSCLE SPASMS [None]
  - POLYP [None]
  - RASH [None]
  - SKIN EXFOLIATION [None]
  - VAGINAL HAEMORRHAGE [None]
